FAERS Safety Report 8509809-6 (Version None)
Quarter: 2012Q2

REPORT INFORMATION
  Report Type: 
  Country: None (occurrence: None)
  Receive Date: 20120405
  Receipt Date: 20090604
  Transmission Date: 20120825
  Serious: Yes (Other)
  Sender: FDA-Public Use
  Company Number: PHEH2009US05698

PATIENT
  Age: 79 Year
  Sex: Male
  Weight: 61.2 kg

DRUGS (7)
  1. RECLAST [Suspect]
     Indication: OSTEOPOROSIS
     Dosage: 5 MG, ONCE/SINGLE, INFLUSION
     Dates: start: 20081001, end: 20081001
  2. PRILOSEC [Concomitant]
  3. ALDACTONE [Concomitant]
  4. MYSOLINE [Concomitant]
  5. BYSTOLIC [Concomitant]
  6. COUMADIN [Concomitant]
  7. FOSINOPRIL SODIUM [Concomitant]

REACTIONS (8)
  - SWELLING FACE [None]
  - BONE DISORDER [None]
  - TOOTH EXTRACTION [None]
  - LYMPHADENOPATHY [None]
  - OSTEONECROSIS [None]
  - ORAL SURGERY [None]
  - LYMPH NODE PAIN [None]
  - FACIAL PAIN [None]
